FAERS Safety Report 7474506-5 (Version None)
Quarter: 2011Q2

REPORT INFORMATION
  Report Type: 
  Country: None (occurrence: None)
  Receive Date: 20110512
  Receipt Date: 20110503
  Transmission Date: 20111010
  Serious: Yes (Hospitalization)
  Sender: FDA-Public Use
  Company Number: US-BIOGENIDEC-2010BI032728

PATIENT
  Age: 45 Year
  Sex: Female

DRUGS (4)
  1. TYSABRI [Suspect]
     Route: 042
     Dates: start: 20110421
  2. TYSABRI [Suspect]
     Route: 042
     Dates: start: 20100706, end: 20100706
  3. TYSABRI [Suspect]
     Route: 042
     Dates: start: 20110112, end: 20110112
  4. TYSABRI [Suspect]
     Indication: MULTIPLE SCLEROSIS
     Route: 042
     Dates: start: 20100514, end: 20100514

REACTIONS (12)
  - MULTIPLE SCLEROSIS RELAPSE [None]
  - ANAEMIA [None]
  - MOBILITY DECREASED [None]
  - ILL-DEFINED DISORDER [None]
  - URINARY TRACT INFECTION [None]
  - BLOOD SODIUM DECREASED [None]
  - MYALGIA [None]
  - FALL [None]
  - MEMORY IMPAIRMENT [None]
  - GAIT DISTURBANCE [None]
  - NERVE INJURY [None]
  - FRACTURED COCCYX [None]
